FAERS Safety Report 7743950-0 (Version None)
Quarter: 2011Q3

REPORT INFORMATION
  Report Type: 
  Country: None (occurrence: None)
  Receive Date: 20110912
  Receipt Date: 20110901
  Transmission Date: 20111222
  Serious: Yes (Life-Threatening, Hospitalization)
  Sender: FDA-Public Use
  Company Number: FI-GLAXOSMITHKLINE-B0744434A

PATIENT
  Sex: Male

DRUGS (2)
  1. ZANTAC [Suspect]
     Indication: DYSPEPSIA
     Dosage: 300MG UNKNOWN
     Route: 048
  2. BLOOD PRESSURE MEDICATION [Concomitant]
     Route: 065

REACTIONS (2)
  - MALAISE [None]
  - CARDIAC ARREST [None]
